FAERS Safety Report 8444137-9 (Version None)
Quarter: 2012Q2

REPORT INFORMATION
  Report Type: 
  Country: None (occurrence: None)
  Receive Date: 20120323
  Receipt Date: 20110708
  Transmission Date: 20120825
  Serious: Yes (Other)
  Sender: FDA-Public Use
  Company Number: 163-21880-11053371

PATIENT
  Age: 64 Year
  Sex: Female
  Weight: 63.5036 kg

DRUGS (10)
  1. ACYCLOVIR (ACICLOVIR) (UNKNOWN) [Concomitant]
  2. LEVAQUIN [Concomitant]
  3. DEXAMETHASONE [Concomitant]
  4. BONIVA [Concomitant]
  5. FLUCONAZOLE [Concomitant]
  6. PAXIL (PAROXETINE HYDROCHLORIDE) (UNKNOWN) [Concomitant]
  7. SIMVASTATIN [Concomitant]
  8. REVLIMID [Suspect]
     Indication: MULTIPLE MYELOMA
     Dosage: 25 MG, Q 3 WEEKS, PO
     Route: 048
     Dates: start: 20090701
  9. VICODIN [Concomitant]
  10. CLARITIN (LORATADINE) (UNKNOWN) [Concomitant]

REACTIONS (1)
  - WHITE BLOOD CELL COUNT DECREASED [None]
